FAERS Safety Report 21048575 (Version 2)
Quarter: 2022Q3

REPORT INFORMATION
  Report Type: Spontaneous
  Country: DE (occurrence: DE)
  Receive Date: 20220706
  Receipt Date: 20220826
  Transmission Date: 20221026
  Serious: Yes (Disabling)
  Sender: FDA-Public Use
  Company Number: DE-NOVARTISPH-NVSC2022DE153228

PATIENT
  Sex: Male
  Weight: 70 kg

DRUGS (4)
  1. DESLORATADINE [Suspect]
     Active Substance: DESLORATADINE
     Indication: Hypersensitivity
     Dosage: UNK, QD
     Route: 048
     Dates: start: 20220601, end: 20220605
  2. AZELASTIN [Concomitant]
     Indication: Hypersensitivity
     Dosage: UNK UNK, BID
     Route: 047
     Dates: start: 20220401, end: 20220630
  3. AUGENTROPFEN [Concomitant]
     Indication: Hypersensitivity
     Dosage: UNK UNK, BID
     Route: 047
     Dates: start: 20220401, end: 20220630
  4. AZELASTINE HYDROCHLORIDE [Concomitant]
     Active Substance: AZELASTINE HYDROCHLORIDE
     Indication: Hypersensitivity
     Dosage: UNK UNK, BID
     Route: 047
     Dates: start: 20220401, end: 20220630

REACTIONS (1)
  - Photophobia [Recovering/Resolving]

NARRATIVE: CASE EVENT DATE: 20220601
